FAERS Safety Report 6825966-1 (Version None)
Quarter: 2010Q3

REPORT INFORMATION
  Report Type: 
  Country: None (occurrence: None)
  Receive Date: 20100709
  Receipt Date: 20100329
  Transmission Date: 20110219
  Serious: No
  Sender: FDA-Public Use
  Company Number: A0852402A

PATIENT
  Age: 75 Year
  Sex: Male

DRUGS (23)
  1. REQUIP XL [Suspect]
     Indication: PARKINSON'S DISEASE
     Dosage: 2MG PER DAY
     Route: 048
     Dates: start: 20100328
  2. NITROSTAT [Concomitant]
  3. TRILIPIX [Concomitant]
  4. JANUMET [Concomitant]
  5. ISOSORBIDE [Concomitant]
  6. NAPROXIN [Concomitant]
  7. ACETAMINOPHEN [Concomitant]
  8. COZAAR [Concomitant]
  9. METOPROLOL [Concomitant]
  10. ASPIRIN [Concomitant]
  11. PLAVIX [Concomitant]
  12. FUROSEMIDE [Concomitant]
  13. AMLODIPINE BESYLATE [Concomitant]
  14. LIPITOR [Concomitant]
  15. LORATADINE [Concomitant]
  16. OMEPRAZOLE [Concomitant]
  17. KLOR-CON [Concomitant]
  18. MULTI-VITAMIN [Concomitant]
  19. ZINC [Concomitant]
  20. VITAMIN E [Concomitant]
  21. VITAMIN C [Concomitant]
  22. COPPER [Concomitant]
  23. IRON [Concomitant]

REACTIONS (1)
  - PAIN [None]
